FAERS Safety Report 25572648 (Version 3)
Quarter: 2025Q3

REPORT INFORMATION
  Report Type: Report from Study
  Country: CA (occurrence: CA)
  Receive Date: 20250717
  Receipt Date: 20250916
  Transmission Date: 20251021
  Serious: Yes (Other)
  Sender: TAKEDA
  Company Number: CA-TAKEDA-2024TUS116492

PATIENT
  Age: 40 Year
  Sex: Male

DRUGS (3)
  1. VEDOLIZUMAB [Suspect]
     Active Substance: VEDOLIZUMAB
     Indication: Colitis ulcerative
  2. VEDOLIZUMAB [Suspect]
     Active Substance: VEDOLIZUMAB
     Dosage: 300 MILLIGRAM, Q4WEEKS
     Dates: start: 20250717
  3. MESALAMINE [Concomitant]
     Active Substance: MESALAMINE

REACTIONS (6)
  - Colitis ulcerative [Unknown]
  - Anxiety [Unknown]
  - Defaecation urgency [Unknown]
  - Impaired work ability [Unknown]
  - Social problem [Unknown]
  - Off label use [Unknown]

NARRATIVE: CASE EVENT DATE: 20250717
